FAERS Safety Report 9532365 (Version 2)
Quarter: 2013Q3

REPORT INFORMATION
  Report Type: Spontaneous
  Country: US (occurrence: US)
  Receive Date: 20130918
  Receipt Date: 20130918
  Transmission Date: 20140515
  Serious: No
  Sender: FDA-Public Use
  Company Number: US-PURDUE-USA-2011-0075294

PATIENT
  Sex: Female

DRUGS (3)
  1. BUTRANS [Suspect]
     Indication: PAIN
     Dosage: 10 MCG, Q1H
     Route: 062
     Dates: start: 20110919
  2. BUTRANS [Suspect]
     Dosage: 5 MCG, Q1H
     Route: 062
     Dates: start: 20110915
  3. NORCO [Concomitant]
     Indication: PRODUCT USED FOR UNKNOWN INDICATION
     Dosage: 325 MG, Q6H

REACTIONS (7)
  - Wrong technique in drug usage process [Unknown]
  - Drug administered at inappropriate site [Unknown]
  - Accidental exposure to product [Unknown]
  - Application site rash [Unknown]
  - Inadequate analgesia [Unknown]
  - Product quality issue [Unknown]
  - Drug effect decreased [Unknown]
